FAERS Safety Report 9882931 (Version 2)
Quarter: 2014Q1

REPORT INFORMATION
  Report Type: Spontaneous
  Country: US (occurrence: US)
  Receive Date: 20140207
  Receipt Date: 20140207
  Transmission Date: 20141002
  Serious: Yes (Hospitalization, Other)
  Sender: FDA-Public Use
  Company Number: US-GE HEALTHCARE MEDICAL DIAGNOSTICS-OSCN-PR-0904S-0207

PATIENT
  Sex: Female

DRUGS (1)
  1. GADOLINIUM (UNSPECIFIED) [Suspect]
     Indication: PARAESTHESIA
     Route: 042
     Dates: start: 19991013, end: 19991013

REACTIONS (1)
  - Nephrogenic systemic fibrosis [Not Recovered/Not Resolved]
